FAERS Safety Report 11109342 (Version 1)
Quarter: 2015Q2

REPORT INFORMATION
  Report Type: Report from Study
  Country: DE (occurrence: DE)
  Receive Date: 20150513
  Receipt Date: 20150513
  Transmission Date: 20150821
  Serious: Yes (Other)
  Sender: FDA-Public Use
  Company Number: DE-INCYTE CORPORATION-2015IN002021

PATIENT
  Sex: Female
  Weight: 51 kg

DRUGS (8)
  1. INCB018424 [Suspect]
     Active Substance: RUXOLITINIB
     Dosage: 5 MG, BID
     Route: 048
     Dates: start: 20131011, end: 20131107
  2. INCB018424 [Suspect]
     Active Substance: RUXOLITINIB
     Dosage: 5 MG, QID
     Route: 048
     Dates: start: 20131108, end: 20140109
  3. INCB018424 [Suspect]
     Active Substance: RUXOLITINIB
     Dosage: 25 MG, QD
     Route: 048
     Dates: start: 20140110, end: 20140717
  4. INCB018424 [Suspect]
     Active Substance: RUXOLITINIB
     Dosage: 25 MG, QD
     Route: 048
     Dates: start: 20130607, end: 20130711
  5. INCB018424 [Suspect]
     Active Substance: RUXOLITINIB
     Indication: MYELOFIBROSIS
     Dosage: 15 MG, BID
     Route: 048
     Dates: start: 20130111, end: 20130321
  6. INCB018424 [Suspect]
     Active Substance: RUXOLITINIB
     Dosage: 5 MG, QID
     Route: 048
     Dates: start: 20130405, end: 20130606
  7. INCB018424 [Suspect]
     Active Substance: RUXOLITINIB
     Dosage: 5 MG, TID
     Route: 048
     Dates: start: 20140718
  8. RAMILICH [Concomitant]
     Active Substance: RAMIPRIL
     Indication: HYPERTENSION
     Dosage: 10 MG, QD
     Route: 065
     Dates: start: 19930101

REACTIONS (1)
  - Iron overload [Not Recovered/Not Resolved]

NARRATIVE: CASE EVENT DATE: 20140328
